FAERS Safety Report 8306750-9 (Version None)
Quarter: 2012Q2

REPORT INFORMATION
  Report Type: 
  Country: None (occurrence: None)
  Receive Date: 20120424
  Receipt Date: 20120422
  Transmission Date: 20120825
  Serious: Yes (Other)
  Sender: FDA-Public Use
  Company Number: US-PFIZER INC-2012098987

PATIENT
  Sex: Female
  Weight: 65.76 kg

DRUGS (2)
  1. CHANTIX [Suspect]
     Indication: SMOKING CESSATION THERAPY
     Dosage: UNK
     Dates: start: 20120401
  2. SAVELLA [Concomitant]
     Indication: FIBROMYALGIA
     Dosage: 25 MG, 2X/DAY

REACTIONS (2)
  - ERYTHEMA [None]
  - HEADACHE [None]
